FAERS Safety Report 7534791-8 (Version None)
Quarter: 2011Q2

REPORT INFORMATION
  Report Type: 
  Country: None (occurrence: None)
  Receive Date: 20110609
  Receipt Date: 20080804
  Transmission Date: 20111010
  Serious: Yes (Death)
  Sender: FDA-Public Use
  Company Number: PHHY2008CA15273

PATIENT
  Sex: Male

DRUGS (5)
  1. TEMAZEPAM [Concomitant]
     Dosage: 30 MG, QHS
  2. ATIVAN [Concomitant]
     Dosage: 1 MG, BID
  3. BUPROPION HCL [Concomitant]
     Dosage: 100 MG, UNK
  4. CLOZAPINE [Suspect]
     Indication: SCHIZOAFFECTIVE DISORDER
     Dosage: 150 MG, UNK
     Route: 048
     Dates: start: 20010709
  5. RISPERDAL [Concomitant]
     Dosage: 1 MG, QHS

REACTIONS (1)
  - DEATH [None]
